FAERS Safety Report 9592837 (Version 2)
Quarter: 2013Q4

REPORT INFORMATION
  Report Type: Report from Study
  Country: BE (occurrence: BE)
  Receive Date: 20131004
  Receipt Date: 20131009
  Transmission Date: 20140711
  Serious: Yes (Death, Hospitalization)
  Sender: FDA-Public Use
  Company Number: PHHY2013BE110675

PATIENT
  Age: 59 Year
  Sex: Female

DRUGS (2)
  1. AFINITOR [Suspect]
     Indication: BREAST CANCER
     Dosage: 10 MG, QD
     Route: 048
     Dates: start: 20130905, end: 20130905
  2. AFINITOR [Suspect]
     Dosage: 5 MG, UNK
     Route: 048

REACTIONS (6)
  - Malignant neoplasm progression [Fatal]
  - Breast cancer [Fatal]
  - Malaise [Unknown]
  - Drug intolerance [Unknown]
  - Chest pain [Unknown]
  - Nausea [Unknown]
